FAERS Safety Report 6387097-7 (Version None)
Quarter: 2009Q4

REPORT INFORMATION
  Report Type: 
  Country: None (occurrence: None)
  Receive Date: 20091002
  Receipt Date: 20090930
  Transmission Date: 20100525
  Serious: Yes (Hospitalization, Other)
  Sender: FDA-Public Use
  Company Number: NL-ROXANE LABORATORIES, INC.-2009-RO-01016RO

PATIENT
  Age: 27 Year
  Sex: Male

DRUGS (2)
  1. CYCLOPHOSPHAMIDE [Suspect]
     Indication: GOODPASTURE'S SYNDROME
     Route: 048
  2. METHYLPREDNISOLONE 4MG TAB [Suspect]
     Indication: GOODPASTURE'S SYNDROME
     Dosage: 1 G
     Route: 042

REACTIONS (3)
  - DEPENDENCE ON ENABLING MACHINE OR DEVICE [None]
  - GOODPASTURE'S SYNDROME [None]
  - VITAL CAPACITY DECREASED [None]
